FAERS Safety Report 6587968-2 (Version None)
Quarter: 2010Q1

REPORT INFORMATION
  Report Type: 
  Country: None (occurrence: None)
  Receive Date: 20100217
  Receipt Date: 20100217
  Transmission Date: 20100710
  Serious: Yes (Other)
  Sender: FDA-Public Use
  Company Number: None

PATIENT
  Sex: Female
  Weight: 70.3075 kg

DRUGS (1)
  1. CHANTIX [Suspect]
     Indication: SMOKING CESSATION THERAPY
     Dosage: START WITH ONE THEN GO TO TWO DAILY PO, ONLY TOOK ONCE
     Route: 048
     Dates: start: 20100206, end: 20100207

REACTIONS (6)
  - DYSSTASIA [None]
  - FALL [None]
  - MOVEMENT DISORDER [None]
  - NAUSEA [None]
  - NEUROPATHY PERIPHERAL [None]
  - TERMINAL INSOMNIA [None]
